FAERS Safety Report 9200600 (Version 2)
Quarter: 2013Q2

REPORT INFORMATION
  Report Type: Spontaneous
  Country: GB (occurrence: GB)
  Receive Date: 20130329
  Receipt Date: 20130410
  Transmission Date: 20140414
  Serious: Yes (Death, Hospitalization)
  Sender: FDA-Public Use
  Company Number: GB-PFIZER INC-200104-1150

PATIENT
  Age: 12 Year
  Sex: Female

DRUGS (8)
  1. PARACETAMOL [Suspect]
     Indication: PAIN
     Dosage: UNK
     Route: 048
  2. PARACETAMOL [Suspect]
     Indication: HEADACHE
  3. PARACETAMOL [Suspect]
     Indication: PYREXIA
  4. PARACETAMOL [Suspect]
     Indication: MALAISE
  5. IBUPROFEN [Suspect]
     Indication: PAIN
     Dosage: UNK
     Route: 048
  6. IBUPROFEN [Suspect]
     Indication: HEADACHE
  7. IBUPROFEN [Suspect]
     Indication: MALAISE
  8. IBUPROFEN [Suspect]
     Indication: PYREXIA

REACTIONS (29)
  - Toxic shock syndrome streptococcal [Fatal]
  - Meningitis streptococcal [Fatal]
  - Pulmonary oedema [Fatal]
  - Adrenal haemorrhage [Fatal]
  - Rash [Fatal]
  - Death [Fatal]
  - Brain oedema [Fatal]
  - Infection [Fatal]
  - Tachycardia [None]
  - Epistaxis [None]
  - Rash erythematous [None]
  - Pupil fixed [None]
  - Pulmonary congestion [None]
  - Papilloedema [None]
  - Hypotonia [None]
  - Areflexia [None]
  - Joint swelling [None]
  - Local swelling [None]
  - Rash macular [None]
  - Depressed level of consciousness [None]
  - General physical health deterioration [None]
  - Bradycardia [None]
  - Hypokalaemia [None]
  - Acidosis [None]
  - Hypocalcaemia [None]
  - Blood pressure systolic increased [None]
  - Platelet count decreased [None]
  - Prothrombin time prolonged [None]
  - Haemoglobin decreased [None]
